FAERS Safety Report 14822932 (Version 1)
Quarter: 2018Q2

REPORT INFORMATION
  Report Type: Spontaneous
  Country: IT (occurrence: IT)
  Receive Date: 20180427
  Receipt Date: 20180427
  Transmission Date: 20180711
  Serious: Yes (Other)
  Sender: FDA-Public Use
  Company Number: PHHY2017IT202629

PATIENT
  Age: 28 Year
  Sex: Female

DRUGS (1)
  1. CEFTRIAXONE. [Suspect]
     Active Substance: CEFTRIAXONE
     Indication: PRODUCT USED FOR UNKNOWN INDICATION
     Route: 065

REACTIONS (4)
  - Chest discomfort [Unknown]
  - Angioedema [Unknown]
  - Dyspnoea [Unknown]
  - Urticaria [Unknown]

NARRATIVE: CASE EVENT DATE: 20170814
